FAERS Safety Report 10549661 (Version 3)
Quarter: 2014Q4

REPORT INFORMATION
  Report Type: Spontaneous
  Country: JP (occurrence: JP)
  Receive Date: 20141028
  Receipt Date: 20141118
  Transmission Date: 20150529
  Serious: Yes (Other)
  Sender: FDA-Public Use
  Company Number: PHHY2014JP062854

PATIENT
  Age: 66 Year
  Sex: Male

DRUGS (3)
  1. SPRYCEL [Concomitant]
     Active Substance: DASATINIB
     Indication: PRODUCT USED FOR UNKNOWN INDICATION
     Dosage: 100 MG, UNK
     Route: 048
     Dates: start: 20140711
  2. TASIGNA [Suspect]
     Active Substance: NILOTINIB
     Dosage: 600 MG, QD
     Route: 048
     Dates: start: 201402, end: 20140710
  3. TASIGNA [Suspect]
     Active Substance: NILOTINIB
     Indication: CHRONIC MYELOID LEUKAEMIA
     Dosage: 800 MG, QD
     Route: 048
     Dates: start: 201309, end: 201402

REACTIONS (8)
  - Blood glucose increased [Recovered/Resolved]
  - Fatigue [Unknown]
  - Dysphonia [Unknown]
  - Weight decreased [Not Recovered/Not Resolved]
  - Hyperthyroidism [Unknown]
  - Thyroiditis [Recovering/Resolving]
  - Hypothyroidism [Unknown]
  - Hypersomnia [Unknown]

NARRATIVE: CASE EVENT DATE: 201312
